FAERS Safety Report 7028621-0 (Version None)
Quarter: 2010Q4

REPORT INFORMATION
  Report Type: 
  Country: None (occurrence: None)
  Receive Date: 20101005
  Receipt Date: 20100928
  Transmission Date: 20110411
  Serious: Yes (Death)
  Sender: FDA-Public Use
  Company Number: US-AMGEN-KDL442110

PATIENT
  Sex: Male
  Weight: 76.7 kg

DRUGS (2)
  1. PROCRIT [Suspect]
     Indication: RENAL FAILURE CHRONIC
     Route: 058
     Dates: start: 20100623, end: 20100720
  2. METOPROLOL [Concomitant]

REACTIONS (1)
  - CARDIAC ARREST [None]
